FAERS Safety Report 18351726 (Version 1)
Quarter: 2020Q4

REPORT INFORMATION
  Report Type: Spontaneous
  Country: US (occurrence: GB)
  Receive Date: 20201007
  Receipt Date: 20201007
  Transmission Date: 20210114
  Serious: No
  Sender: FDA-Public Use
  Company Number: US-JNJFOC-20201001213

PATIENT
  Age: 6 Decade
  Sex: Female

DRUGS (1)
  1. ZYRTEC [Suspect]
     Active Substance: CETIRIZINE HYDROCHLORIDE
     Indication: HYPERSENSITIVITY
     Dosage: START DATE -  IN SPRING, LAST ADMIN DATE: /SEP/2020 A WEEK PRIOR TO REPORT
     Route: 048

REACTIONS (1)
  - Drug ineffective [Unknown]
